FAERS Safety Report 5523063-9 (Version None)
Quarter: 2007Q4

REPORT INFORMATION
  Report Type: 
  Country: None (occurrence: None)
  Receive Date: 20071121
  Receipt Date: 20071112
  Transmission Date: 20080405
  Serious: Yes (Other)
  Sender: FDA-Public Use
  Company Number: PHBS2007GR19069

PATIENT
  Age: 43 Year
  Sex: Female

DRUGS (3)
  1. DEFEROXAMINE MESYLATE [Suspect]
     Indication: IRON OVERLOAD
     Dosage: 40 MG/KG/DAY TIW
     Route: 058
  2. DEFEROXAMINE MESYLATE [Suspect]
     Dosage: 80 MG/KG/DAY TIW
     Route: 058
  3. DEFERIPRONE [Suspect]
     Indication: THALASSAEMIA BETA
     Dosage: 80 MG/KG/DAY
     Route: 048

REACTIONS (10)
  - ASTHENIA [None]
  - ATRIAL FIBRILLATION [None]
  - DIZZINESS [None]
  - ELECTROCARDIOGRAM T WAVE INVERSION [None]
  - FATIGUE [None]
  - HYPOTENSION [None]
  - OVERDOSE [None]
  - PALPITATIONS [None]
  - SINUS TACHYCARDIA [None]
  - SUPRAVENTRICULAR EXTRASYSTOLES [None]
